FAERS Safety Report 8776075 (Version 2)
Quarter: 2013Q2

REPORT INFORMATION
  Report Type: Report from Study
  Country: JP (occurrence: JP)
  Receive Date: 20120910
  Receipt Date: 20130403
  Transmission Date: 20140414
  Serious: Yes (Other)
  Sender: FDA-Public Use
  Company Number: JP-VERTEX PHARMACEUTICAL INC.-2012-020340

PATIENT
  Age: 63 Year
  Sex: Male

DRUGS (12)
  1. VX-950 (TELAPREVIR) [Suspect]
     Indication: CHRONIC HEPATITIS C
     Dosage: 2250 MG, QD
     Route: 048
     Dates: start: 20120705, end: 20120712
  2. VX-950 (TELAPREVIR) [Suspect]
     Dosage: 1500 MG, QD
     Route: 048
     Dates: start: 20120714, end: 20120816
  3. REBETOL [Suspect]
     Indication: CHRONIC HEPATITIS C
     Dosage: 800 MG, QD
     Route: 048
     Dates: start: 20120705, end: 20120712
  4. REBETOL [Suspect]
     Dosage: 600 MG, QD
     Route: 048
     Dates: start: 20120714, end: 20120719
  5. REBETOL [Suspect]
     Dosage: 400 MG, QD
     Route: 048
     Dates: start: 20120720, end: 20120725
  6. REBETOL [Suspect]
     Dosage: 200 MG, QD
     Route: 048
     Dates: start: 20120726, end: 20120816
  7. PEGINTRON [Suspect]
     Indication: CHRONIC HEPATITIS C
     Dosage: 1.5 ?G/KG, QW
     Route: 058
     Dates: start: 20120705, end: 20120705
  8. PEGINTRON [Suspect]
     Dosage: 1.0 ?G/KG, QW
     Route: 058
     Dates: start: 20120714, end: 20120714
  9. PEGINTRON [Suspect]
     Dosage: 1.25 ?G/KG, UNK
     Route: 058
     Dates: start: 20120720, end: 20120726
  10. PEGINTRON [Suspect]
     Dosage: 1.5 ?G/KG, UNK
     Route: 058
     Dates: start: 20120802, end: 20120809
  11. URSO [Concomitant]
     Dosage: 300 MG, QD
     Route: 048
  12. NORVASC [Concomitant]
     Dosage: 5 MG, QD
     Route: 048

REACTIONS (1)
  - Retinal ischaemia [Recovered/Resolved]
